FAERS Safety Report 19511182 (Version 1)
Quarter: 2021Q3

REPORT INFORMATION
  Report Type: Spontaneous
  Country: US (occurrence: US)
  Receive Date: 20210708
  Receipt Date: 20210708
  Transmission Date: 20211014
  Serious: No
  Sender: FDA-Public Use
  Company Number: None

PATIENT
  Age: 90 Year
  Sex: Female
  Weight: 45.81 kg

DRUGS (32)
  1. AMMONIUM LACTATE. [Concomitant]
     Active Substance: AMMONIUM LACTATE
  2. SPIRONOLACTONE. [Concomitant]
     Active Substance: SPIRONOLACTONE
  3. VITAMIN B12 [Concomitant]
     Active Substance: CYANOCOBALAMIN
  4. AROMASIN [Concomitant]
     Active Substance: EXEMESTANE
  5. LOPERAMIDE [Concomitant]
     Active Substance: LOPERAMIDE
  6. LUTEIN [Concomitant]
     Active Substance: LUTEIN
  7. METOPROLOL. [Concomitant]
     Active Substance: METOPROLOL
  8. POTASSIUM CHLORIDE. [Concomitant]
     Active Substance: POTASSIUM CHLORIDE
  9. VITAMIN D [Concomitant]
     Active Substance: VITAMIN D NOS
  10. CALCIUM CITRATE [Concomitant]
     Active Substance: CALCIUM CITRATE
  11. METOLAZONE. [Concomitant]
     Active Substance: METOLAZONE
  12. PIQRAY [Concomitant]
     Active Substance: ALPELISIB
  13. TORSEMIDE. [Concomitant]
     Active Substance: TORSEMIDE
  14. AMIODARONE [Concomitant]
     Active Substance: AMIODARONE
  15. COENZYME Q10 [Concomitant]
     Active Substance: DIETARY SUPPLEMENT\UBIDECARENONE
  16. ELIQUIS [Concomitant]
     Active Substance: APIXABAN
  17. LEVOTHYROXINE. [Concomitant]
     Active Substance: LEVOTHYROXINE
  18. SELENIUM [Concomitant]
     Active Substance: SELENIUM
  19. VERZENIO [Suspect]
     Active Substance: ABEMACICLIB
     Indication: BREAST CANCER FEMALE
     Dosage: ?          OTHER FREQUENCY:1QPM X 21D ;?
     Route: 048
     Dates: start: 20210529
  20. EVEROLIMUS 2.5MG [Suspect]
     Active Substance: EVEROLIMUS
     Dosage: ?          OTHER FREQUENCY:1 QD ;?
     Route: 048
  21. CYTOMEL [Concomitant]
     Active Substance: LIOTHYRONINE SODIUM
  22. EXEMESTANE. [Concomitant]
     Active Substance: EXEMESTANE
  23. PRESEVISION AREDS 2 [Concomitant]
  24. REMERON [Concomitant]
     Active Substance: MIRTAZAPINE
  25. SYNTHROID [Concomitant]
     Active Substance: LEVOTHYROXINE SODIUM
  26. VITAMIN B6 [Concomitant]
     Active Substance: PYRIDOXINE HYDROCHLORIDE
  27. AMLODIPINE [Concomitant]
     Active Substance: AMLODIPINE BESYLATE
  28. LIOTHYRONINE [Concomitant]
     Active Substance: LIOTHYRONINE
  29. MAGNESIUM OXIDE. [Concomitant]
     Active Substance: MAGNESIUM OXIDE
  30. VITAMIN D3 [Concomitant]
     Active Substance: CHOLECALCIFEROL
  31. FISH OIL BURP?LESS [Concomitant]
     Active Substance: FISH OIL
  32. VITAMIN C [Concomitant]
     Active Substance: ASCORBIC ACID

REACTIONS (2)
  - Therapy cessation [None]
  - Disease progression [None]
